FAERS Safety Report 15747415 (Version 1)
Quarter: 2018Q4

REPORT INFORMATION
  Report Type: Spontaneous
  Country: JP (occurrence: JP)
  Receive Date: 20181220
  Receipt Date: 20181220
  Transmission Date: 20190205
  Serious: Yes (Hospitalization, Other)
  Sender: FDA-Public Use
  Company Number: JP-MYLANLABS-2018M1091308

PATIENT
  Age: 29 Year
  Sex: Male

DRUGS (8)
  1. ZOLPIDEM [Suspect]
     Active Substance: ZOLPIDEM\ZOLPIDEM TARTRATE
     Dosage: HE OCCASIONALLY TOOK UP TO 1200 MG/DAY
     Route: 048
  2. ZOLPIDEM [Suspect]
     Active Substance: ZOLPIDEM\ZOLPIDEM TARTRATE
     Dosage: ON THE DAY OF ADMISSION, HE HAD TAKEN 200 MG ZOLPIDEM BETWEEN THE MORNING AND MID-AFTERNOON
     Route: 048
  3. ZOLPIDEM [Suspect]
     Active Substance: ZOLPIDEM\ZOLPIDEM TARTRATE
     Indication: INSOMNIA
     Dosage: HE OCCASIONALLY INCREASED THE ZOLPIDEM DOSE BASED ON HIS OWN JUDGEMENT
     Route: 048
  4. BROTIZOLAM [Concomitant]
     Active Substance: BROTIZOLAM
     Indication: INSOMNIA
     Route: 065
  5. ZOLPIDEM [Suspect]
     Active Substance: ZOLPIDEM\ZOLPIDEM TARTRATE
     Indication: INSOMNIA
     Dosage: AT BEDTIME
     Route: 048
  6. ZOLPIDEM [Suspect]
     Active Substance: ZOLPIDEM\ZOLPIDEM TARTRATE
     Dosage: ON THE DAY OF ADMISSION, 100 MG BEFORE GOING TO BED
     Route: 048
  7. QUAZEPAM. [Concomitant]
     Active Substance: QUAZEPAM
     Indication: INSOMNIA
     Route: 065
  8. ZOLPIDEM [Suspect]
     Active Substance: ZOLPIDEM\ZOLPIDEM TARTRATE
     Dosage: HE INCREASED THE DOSE AND TYPICALLY CONSUMED APPROXIMATELY 300 TO 400 MG ZOLPIDEM PER DAY (50 MG ...
     Route: 048

REACTIONS (13)
  - Toxicity to various agents [Recovering/Resolving]
  - Restlessness [Unknown]
  - Drug abuse [Unknown]
  - Agitation [Unknown]
  - Somnolence [Recovering/Resolving]
  - Drug dependence [Unknown]
  - Road traffic accident [Unknown]
  - Withdrawal syndrome [Recovering/Resolving]
  - Overdose [Unknown]
  - Nightmare [Recovering/Resolving]
  - Irritability [Unknown]
  - Anterograde amnesia [Unknown]
  - Dysarthria [Unknown]
